FAERS Safety Report 9310656 (Version 1)
Quarter: 2013Q2

REPORT INFORMATION
  Report Type: Spontaneous
  Country: DE (occurrence: DE)
  Receive Date: 20130527
  Receipt Date: 20130527
  Transmission Date: 20140414
  Serious: Yes (Death)
  Sender: FDA-Public Use
  Company Number: DE-009507513-1305DEU013438

PATIENT
  Sex: 0

DRUGS (4)
  1. REBETOL [Suspect]
     Indication: HEPATITIS C
  2. PEGINTRON [Suspect]
     Indication: HEPATITIS C
  3. VICTRELIS [Suspect]
     Indication: HEPATITIS C
     Route: 048
  4. TELAPREVIR [Concomitant]

REACTIONS (1)
  - Infection [Fatal]
